FAERS Safety Report 14481731 (Version 1)
Quarter: 2018Q1

REPORT INFORMATION
  Report Type: Report from Study
  Country: BR (occurrence: BR)
  Receive Date: 20180202
  Receipt Date: 20180202
  Transmission Date: 20180509
  Serious: Yes (Hospitalization, Other)
  Sender: FDA-Public Use
  Company Number: PHHY2017BR158140

PATIENT
  Age: 75 Year
  Sex: Female
  Weight: 63 kg

DRUGS (3)
  1. DIOVAN HCT [Suspect]
     Active Substance: HYDROCHLOROTHIAZIDE\VALSARTAN
     Indication: HYPERTENSION
     Dosage: 1 DF, QD (HYDROCHLOROTHIAZIDE 12.5 MG, VALSARTAN 160 MG) (SINCE 30 YEARS)
     Route: 048
  2. TYLEX [Concomitant]
     Active Substance: ACETAMINOPHEN\CODEINE PHOSPHATE
     Indication: PRODUCT USED FOR UNKNOWN INDICATION
     Route: 065
  3. DIOVAN HCT [Suspect]
     Active Substance: HYDROCHLOROTHIAZIDE\VALSARTAN
     Dosage: 1 DF, QD (HYDROCHLOROTHIAZIDE 12.5 MG, VALSARTAN 160 MG) (SINCE 30 YEARS)
     Route: 048

REACTIONS (29)
  - Spinal cord injury lumbar [Not Recovered/Not Resolved]
  - Diabetes mellitus [Unknown]
  - Fall [Unknown]
  - Tremor [Unknown]
  - Accident [Not Recovered/Not Resolved]
  - Spinal cord injury cervical [Not Recovered/Not Resolved]
  - Headache [Recovered/Resolved]
  - Kidney infection [Unknown]
  - Hypoaesthesia [Unknown]
  - Cartilage injury [Unknown]
  - Dizziness [Unknown]
  - Nervousness [Unknown]
  - Dry mouth [Unknown]
  - Quadriplegia [Unknown]
  - Muscular weakness [Unknown]
  - Vision blurred [Unknown]
  - Blood pressure increased [Unknown]
  - Tongue dry [Unknown]
  - Skeletal injury [Unknown]
  - Memory impairment [Unknown]
  - Drug intolerance [Unknown]
  - Mouth haemorrhage [Unknown]
  - Drug dispensing error [Unknown]
  - Hypoacusis [Unknown]
  - Disturbance in attention [Unknown]
  - Abdominal pain upper [Unknown]
  - Pain [Unknown]
  - Gait inability [Unknown]
  - Arthropathy [Not Recovered/Not Resolved]

NARRATIVE: CASE EVENT DATE: 20180115
